FAERS Safety Report 16094818 (Version 1)
Quarter: 2019Q1

REPORT INFORMATION
  Report Type: Spontaneous
  Country: US (occurrence: US)
  Receive Date: 20190218
  Receipt Date: 20190218
  Transmission Date: 20190418
  Serious: No
  Sender: FDA-Public Use
  Company Number: None

PATIENT
  Age: 64 Year
  Sex: Male

DRUGS (1)
  1. ABIRATERONE 250MG TAB [Suspect]
     Active Substance: ABIRATERONE
     Route: 048
     Dates: start: 201901

REACTIONS (5)
  - Nausea [None]
  - Product substitution issue [None]
  - Vomiting [None]
  - Abdominal discomfort [None]
  - Fatigue [None]

NARRATIVE: CASE EVENT DATE: 20190209
